FAERS Safety Report 25703189 (Version 1)
Quarter: 2025Q3

REPORT INFORMATION
  Report Type: Spontaneous
  Country: US (occurrence: US)
  Receive Date: 20250820
  Receipt Date: 20250820
  Transmission Date: 20251020
  Serious: Yes (Other)
  Sender: ACCORD
  Company Number: US-Accord-466241

PATIENT
  Sex: Male
  Weight: 77.11 kg

DRUGS (4)
  1. BICALUTAMIDE [Suspect]
     Active Substance: BICALUTAMIDE
     Indication: Prostate cancer
     Route: 048
  2. XARELTO [Concomitant]
     Active Substance: RIVAROXABAN
  3. LUPRON [Concomitant]
     Active Substance: LEUPROLIDE ACETATE
     Indication: Prostate cancer
  4. XARELTO [Concomitant]
     Active Substance: RIVAROXABAN

REACTIONS (6)
  - Headache [Unknown]
  - Dizziness [Unknown]
  - Pain [Unknown]
  - Off label use [Unknown]
  - Cataract [Unknown]
  - Feeling abnormal [Unknown]
